FAERS Safety Report 9833135 (Version 2)
Quarter: 2014Q1

REPORT INFORMATION
  Report Type: Spontaneous
  Country: US (occurrence: US)
  Receive Date: 20140121
  Receipt Date: 20140121
  Transmission Date: 20141002
  Serious: Yes (Disabling)
  Sender: FDA-Public Use
  Company Number: US-GE HEALTHCARE MEDICAL DIAGNOSTICS-OSCN-PR-0805S-0300

PATIENT
  Age: 55 Year
  Sex: Female
  Weight: 71 kg

DRUGS (8)
  1. OMNISCAN [Suspect]
     Indication: PAIN IN EXTREMITY
     Route: 042
     Dates: start: 20070114, end: 20070323
  2. OMNISCAN [Suspect]
     Indication: GANGRENE
     Route: 042
     Dates: start: 20070323, end: 20070323
  3. OMNISCAN [Suspect]
     Route: 042
     Dates: start: 20070117, end: 20070117
  4. GADOLINIUM (UNSPECIFIED) [Suspect]
     Indication: RENAL FAILURE CHRONIC
     Route: 042
     Dates: start: 20040416, end: 20040416
  5. GADOLINIUM (UNSPECIFIED) [Suspect]
     Indication: NEPHROLITHIASIS
     Route: 042
     Dates: start: 20070327, end: 20070327
  6. GADOLINIUM (UNSPECIFIED) [Suspect]
     Indication: PRODUCT USED FOR UNKNOWN INDICATION
     Route: 042
     Dates: start: 20070328, end: 20070328
  7. GADOLINIUM (UNSPECIFIED) [Suspect]
     Route: 042
     Dates: start: 20080331, end: 20080331
  8. MAGNEVIST [Suspect]
     Indication: CONVULSION
     Route: 042
     Dates: start: 20070225, end: 20070225

REACTIONS (1)
  - Nephrogenic systemic fibrosis [Not Recovered/Not Resolved]
